FAERS Safety Report 5919106-0 (Version None)
Quarter: 2008Q3

REPORT INFORMATION
  Report Type: 
  Country: None (occurrence: None)
  Receive Date: 20080909
  Receipt Date: 20061227
  Transmission Date: 20090109
  Serious: Yes (Hospitalization)
  Sender: FDA-Public Use
  Company Number: 163-20785-06121206 (0)

PATIENT
  Age: 70 Year
  Sex: Male

DRUGS (8)
  1. THALOMID [Suspect]
     Indication: MULTIPLE MYELOMA
     Dosage: 1 IN 1 D, ORAL
     Route: 048
     Dates: start: 20061004
  2. ACYCLOVIR [Concomitant]
  3. PROCRIT [Concomitant]
  4. DILTIAZEM [Concomitant]
  5. LISINOPRIL [Concomitant]
  6. OXYCODONE HCL [Concomitant]
  7. FOLIC ACID [Concomitant]
  8. LEXAPRO [Concomitant]

REACTIONS (9)
  - BLOOD CREATININE INCREASED [None]
  - CHILLS [None]
  - CONFUSIONAL STATE [None]
  - DYSPNOEA [None]
  - METASTATIC RENAL CELL CARCINOMA [None]
  - MUSCULAR WEAKNESS [None]
  - NASAL CONGESTION [None]
  - PNEUMONITIS [None]
  - PYREXIA [None]
